FAERS Safety Report 7594343-0 (Version None)
Quarter: 2011Q3

REPORT INFORMATION
  Report Type: 
  Country: None (occurrence: None)
  Receive Date: 20110707
  Receipt Date: 20110701
  Transmission Date: 20111222
  Serious: Yes (Death, Life-Threatening, Hospitalization, Disabling)
  Sender: FDA-Public Use
  Company Number: ES-BRISTOL-MYERS SQUIBB COMPANY-15117302

PATIENT
  Age: 67 Year
  Sex: Male
  Weight: 107 kg

DRUGS (3)
  1. CETUXIMAB [Suspect]
     Indication: NON-SMALL CELL LUNG CANCER
     Dosage: 500MG/M2 1 IN 2W-17MAY10,CETUXIMAB 5MG/ML; RECENT INFUSION ON 30APR10(20TH ADMINISTRATION IN TOTAL)
     Route: 042
     Dates: start: 20091116, end: 20100430
  2. CARBOPLATIN [Suspect]
     Indication: NON-SMALL CELL LUNG CANCER
     Dosage: ON DAY 1 OF 21 DAY CYCLE,1 DF=6AUC,MOST RECENT DOSE ON 24MAR2010.
     Route: 042
     Dates: start: 20091116
  3. PACLITAXEL [Suspect]
     Indication: NON-SMALL CELL LUNG CANCER
     Dosage: ON DAY 1 OF 21 DAY CYCLE,MOST RECENT ON 24MAR2010.
     Route: 042
     Dates: start: 20091116

REACTIONS (7)
  - LYMPHOCYTE PERCENTAGE DECREASED [None]
  - EOSINOPHIL PERCENTAGE DECREASED [None]
  - INTERSTITIAL LUNG DISEASE [None]
  - OPPORTUNISTIC INFECTION [None]
  - HAEMOGLOBIN DECREASED [None]
  - MONOCYTE PERCENTAGE DECREASED [None]
  - BLOOD GLUCOSE INCREASED [None]
